FAERS Safety Report 16398692 (Version 1)
Quarter: 2019Q2

REPORT INFORMATION
  Report Type: Spontaneous
  Country: US (occurrence: US)
  Receive Date: 20190501
  Receipt Date: 20190501
  Transmission Date: 20190711
  Serious: No
  Sender: FDA-Public Use
  Company Number: None

PATIENT
  Sex: Male

DRUGS (2)
  1. STIVARGA [Suspect]
     Active Substance: REGORAFENIB
     Indication: METASTASES TO LIVER
     Route: 048
     Dates: start: 20190221
  2. STIVARGA [Suspect]
     Active Substance: REGORAFENIB
     Indication: CHOLANGIOCARCINOMA
     Route: 048
     Dates: start: 20190221

REACTIONS (1)
  - Neuropathy peripheral [None]
